FAERS Safety Report 6702099-6 (Version None)
Quarter: 2010Q2

REPORT INFORMATION
  Report Type: 
  Country: None (occurrence: None)
  Receive Date: 20100429
  Receipt Date: 20100416
  Transmission Date: 20101027
  Serious: Yes (Death)
  Sender: FDA-Public Use
  Company Number: IE-MEDIMMUNE-MEDI-0010087

PATIENT
  Sex: Female

DRUGS (4)
  1. SYNAGIS [Suspect]
     Route: 030
     Dates: end: 20091207
  2. CIPROFLOXACIN [Concomitant]
  3. ACETYLSALICYLIC ACID [Concomitant]
  4. RANITIDINE [Concomitant]

REACTIONS (1)
  - DEATH [None]
